FAERS Safety Report 20673887 (Version 1)
Quarter: 2022Q2

REPORT INFORMATION
  Report Type: Spontaneous
  Country: JP (occurrence: JP)
  Receive Date: 20220405
  Receipt Date: 20220405
  Transmission Date: 20220721
  Serious: Yes (Other)
  Sender: FDA-Public Use
  Company Number: JP-HQ SPECIALTY-JP-2022INT000094

PATIENT
  Age: 69 Year
  Sex: Female

DRUGS (5)
  1. CISPLATIN [Suspect]
     Active Substance: CISPLATIN
     Indication: Adrenocortical carcinoma
     Dosage: 40 MG/M2, DAYS 3 AND 4 (2 CYCLES)
     Route: 065
  2. ETOPOSIDE [Suspect]
     Active Substance: ETOPOSIDE
     Indication: Adrenocortical carcinoma
     Dosage: 100 MG/M2, DAYS 2-4 (2 CYCLES)
     Route: 065
  3. DOXORUBICIN [Suspect]
     Active Substance: DOXORUBICIN
     Indication: Adrenocortical carcinoma
     Dosage: 40 MG/M2, DAY 1 (2 CYCLES)
     Route: 065
  4. MITOTANE [Suspect]
     Active Substance: MITOTANE
     Indication: Adrenocortical carcinoma
     Dosage: 1500 MG, QD (STARTING DOSE EDP-M THERAPY)
     Route: 048
  5. MITOTANE [Suspect]
     Active Substance: MITOTANE
     Dosage: PROGRESSIVE DOSE INCREMENTS UP TO 4000 MG/DAY
     Route: 048

REACTIONS (3)
  - Adrenal insufficiency [Unknown]
  - Neutropenia [Unknown]
  - Febrile neutropenia [Unknown]
